FAERS Safety Report 9018693 (Version 2)
Quarter: 2013Q2

REPORT INFORMATION
  Report Type: Report from Study
  Country: BR (occurrence: BR)
  Receive Date: 20130118
  Receipt Date: 20130516
  Transmission Date: 20140414
  Serious: No
  Sender: FDA-Public Use
  Company Number: PHHY2013BR003600

PATIENT
  Age: 71 Year
  Sex: Male
  Weight: 90 kg

DRUGS (5)
  1. DIOVAN TRIPLE [Suspect]
     Indication: HYPERTENSION
     Dosage: 1 (160+25+10) MG, QD
  2. DIOVAN TRIPLE [Suspect]
     Dosage: 1 (160+25+10) MG TABLET, QD
  3. METFORMIN [Concomitant]
     Indication: DIABETES MELLITUS
     Dosage: 2 DF, QD
     Route: 048
  4. GLIMEPIRIDE [Concomitant]
     Indication: DIABETES MELLITUS
     Dosage: 1 DF, DAILY
     Route: 048
  5. HUMAN MONOSULIN [Concomitant]
     Indication: BLOOD INSULIN ABNORMAL
     Dosage: 15 ML, QD
     Route: 058

REACTIONS (5)
  - Confusional state [Recovering/Resolving]
  - Dizziness [Recovering/Resolving]
  - Insomnia [Recovering/Resolving]
  - Hypertension [Not Recovered/Not Resolved]
  - Drug ineffective [Not Recovered/Not Resolved]
